FAERS Safety Report 24707990 (Version 3)
Quarter: 2025Q3

REPORT INFORMATION
  Report Type: Report from Study
  Country: KR (occurrence: None)
  Receive Date: 20241206
  Receipt Date: 20250803
  Transmission Date: 20251020
  Serious: Yes (Life-Threatening, Hospitalization)
  Sender: ALEXION PHARMACEUTICALS
  Company Number: KR-ASTRAZENECA-202412GLO003082KR

PATIENT
  Sex: Female
  Weight: 54.4 kg

DRUGS (1)
  1. DURVALUMAB [Suspect]
     Active Substance: DURVALUMAB
     Indication: Non-small cell lung cancer

REACTIONS (1)
  - Platelet count decreased [Recovered/Resolved]

NARRATIVE: CASE EVENT DATE: 20231228
